FAERS Safety Report 9852128 (Version 1)
Quarter: 2014Q1

REPORT INFORMATION
  Report Type: Spontaneous
  Country: US (occurrence: US)
  Receive Date: 20140129
  Receipt Date: 20140129
  Transmission Date: 20141002
  Serious: Yes (Other)
  Sender: FDA-Public Use
  Company Number: US-BAYER-2014-011659

PATIENT
  Age: 65 Year
  Sex: Female

DRUGS (19)
  1. ALEVE CAPLET [Suspect]
     Indication: PRODUCT USED FOR UNKNOWN INDICATION
  2. IBUPROFEN [Suspect]
     Indication: PRODUCT USED FOR UNKNOWN INDICATION
  3. REVLIMID [Suspect]
     Indication: HODGKIN^S DISEASE
     Dosage: 15 MG, 1- 2 DF UNK
     Dates: start: 201103
  4. VOLTAREN [Concomitant]
  5. LORATADINE [Concomitant]
  6. TYLENOL ARTHRITIS [Concomitant]
  7. ESTRACE [Concomitant]
  8. VALTREX [Concomitant]
  9. BENADRYL [Concomitant]
  10. ZANTAC [Concomitant]
  11. FISH OIL [Concomitant]
  12. GABAPENTIN [Concomitant]
  13. PREDNISONE [Concomitant]
  14. ARGININE HYDROCHLORIDE [Concomitant]
  15. CLOBETASOL [Concomitant]
  16. TRAMADOL HCL CF [Concomitant]
  17. GLUCOSAMINE COMPLEX [Concomitant]
  18. CENTRUM SILVER [Concomitant]
  19. CALCIUM CITRATE W/VITAMIN D NOS [Concomitant]

REACTIONS (4)
  - Cellulitis [None]
  - Platelet count decreased [None]
  - White blood cell count decreased [None]
  - Blood pressure increased [None]
